FAERS Safety Report 9029704 (Version 1)
Quarter: 2013Q1

REPORT INFORMATION
  Report Type: Report from Study
  Country: SE (occurrence: SE)
  Receive Date: 20130124
  Receipt Date: 20130124
  Transmission Date: 20140127
  Serious: Yes (Hospitalization)
  Sender: FDA-Public Use
  Company Number: SE-ABBOTT-13P-150-1039983-00

PATIENT
  Age: 83 Year
  Sex: Male

DRUGS (11)
  1. ZEMPLAR [Suspect]
     Indication: RENAL FAILURE CHRONIC
     Route: 048
     Dates: start: 20110913
  2. SODIUM BICARBONATE [Concomitant]
     Indication: ACIDOSIS
     Dosage: 1X3
     Dates: start: 20101007
  3. OMEPRAZOL [Concomitant]
     Indication: PROPHYLAXIS AGAINST GASTROINTESTINAL ULCER
     Dates: start: 20110628
  4. TROMBYL [Concomitant]
     Indication: THROMBOSIS PROPHYLAXIS
     Dates: start: 20120126, end: 20120502
  5. DUROFERON [Concomitant]
     Indication: MINERAL SUPPLEMENTATION
     Dates: start: 20101007
  6. ARANESP [Concomitant]
     Indication: PRODUCT USED FOR UNKNOWN INDICATION
     Dates: start: 20101007
  7. FURIX [Concomitant]
     Indication: DIURETIC THERAPY
     Dates: start: 20101007
  8. ENALAPRIL [Concomitant]
     Indication: HYPERTENSION
     Dosage: 1X2. INSTRUCTION TO TEMP. DISCONTINUE IF DIARRHEA/VOMITING.
     Dates: start: 20101007
  9. ALLOPURINOL [Concomitant]
     Indication: GOUT
     Dates: start: 20101007
  10. ALVEDON [Concomitant]
     Indication: ANALGESIC THERAPY
     Dosage: 1-2 TABLETS WHEN NEEDED. MAX 6 TABLETS/24 HOURS.
     Dates: start: 20110321
  11. RESONIUM [Concomitant]
     Indication: BLOOD POTASSIUM DECREASED
     Dosage: ONE DOSEUNIT ONCE A DAY
     Dates: start: 20110512

REACTIONS (2)
  - Arteriovenous fistula [Recovered/Resolved]
  - Renal failure chronic [Unknown]
